FAERS Safety Report 4750694-6 (Version None)
Quarter: 2005Q3

REPORT INFORMATION
  Report Type: 
  Country: None (occurrence: None)
  Receive Date: 20050823
  Receipt Date: 20050812
  Transmission Date: 20060218
  Serious: Yes (Other)
  Sender: FDA-Public Use
  Company Number: GB-BRISTOL-MYERS SQUIBB COMPANY-13074968

PATIENT
  Sex: Male

DRUGS (11)
  1. ABILIFY [Suspect]
     Indication: MANIA
     Dosage: DOSE VALUE:  10 TO 30 MG
     Route: 048
     Dates: start: 20050715, end: 20050728
  2. ABILIFY [Suspect]
     Indication: PSYCHOTIC DISORDER
     Dosage: DOSE VALUE:  10 TO 30 MG
     Route: 048
     Dates: start: 20050715, end: 20050728
  3. LITHIUM CARBONATE [Concomitant]
     Indication: MANIA
     Route: 048
     Dates: start: 20050415
  4. LITHIUM CARBONATE [Concomitant]
     Indication: PSYCHOTIC DISORDER
     Route: 048
     Dates: start: 20050415
  5. VALPROIC ACID [Concomitant]
     Indication: MANIA
     Route: 048
     Dates: start: 20050708
  6. VALPROIC ACID [Concomitant]
     Indication: PSYCHOTIC DISORDER
     Route: 048
     Dates: start: 20050708
  7. OLANZAPINE [Concomitant]
     Indication: PSYCHOTIC DISORDER
     Dates: start: 20050316
  8. OLANZAPINE [Concomitant]
     Indication: MANIA
     Dates: start: 20050316
  9. SALACTOL [Concomitant]
     Route: 061
  10. DILTIAZEM HCL [Concomitant]
     Indication: MANIA
  11. DILTIAZEM HCL [Concomitant]
     Indication: PSYCHOTIC DISORDER

REACTIONS (4)
  - DELUSION [None]
  - FEAR [None]
  - SOMNOLENCE [None]
  - VISION BLURRED [None]
